FAERS Safety Report 9646092 (Version 2)
Quarter: 2013Q4

REPORT INFORMATION
  Report Type: Spontaneous
  Country: US (occurrence: US)
  Receive Date: 20131025
  Receipt Date: 20131025
  Transmission Date: 20140711
  Serious: No
  Sender: FDA-Public Use
  Company Number: US-TEVA-404531USA

PATIENT
  Age: 65 Year
  Sex: Female

DRUGS (13)
  1. PACLITAXEL [Suspect]
     Indication: CHEMOTHERAPY
     Route: 033
  2. CISPLATIN [Concomitant]
     Indication: CHEMOTHERAPY
     Route: 033
  3. PREDNISONE [Concomitant]
     Indication: CHEMOTHERAPY
  4. OMEPRAZOLE [Concomitant]
  5. TRAZODONE [Concomitant]
  6. LEVOTHYROID [Concomitant]
  7. ZOFRAN [Concomitant]
  8. HYDROCODONE [Concomitant]
  9. COMPAZINE [Concomitant]
  10. ATIVAN [Concomitant]
  11. NORCO [Concomitant]
  12. EMEND [Concomitant]
     Dosage: TRIPACK
  13. MAGNESIUM SULFATE [Concomitant]

REACTIONS (1)
  - Rash [Recovered/Resolved]
